FAERS Safety Report 5697697-5 (Version None)
Quarter: 2008Q2

REPORT INFORMATION
  Report Type: 
  Country: None (occurrence: None)
  Receive Date: 20080408
  Receipt Date: 20080401
  Transmission Date: 20081010
  Serious: Yes (Other)
  Sender: FDA-Public Use
  Company Number: B0359756A

PATIENT
  Sex: Male

DRUGS (1)
  1. SEROXAT [Suspect]
     Indication: DEPRESSION
     Route: 065
     Dates: start: 19991201

REACTIONS (14)
  - ABNORMAL BEHAVIOUR [None]
  - AGGRESSION [None]
  - AGITATION [None]
  - CONFUSIONAL STATE [None]
  - DISTURBANCE IN ATTENTION [None]
  - DRUG WITHDRAWAL SYNDROME [None]
  - HALLUCINATION [None]
  - HYPERHIDROSIS [None]
  - MEMORY IMPAIRMENT [None]
  - NIGHTMARE [None]
  - SELF-INJURIOUS IDEATION [None]
  - SLEEP DISORDER [None]
  - SUICIDAL IDEATION [None]
  - SUICIDE ATTEMPT [None]
